FAERS Safety Report 4715898-7 (Version None)
Quarter: 2005Q3

REPORT INFORMATION
  Report Type: 
  Country: None (occurrence: None)
  Receive Date: 20050712
  Receipt Date: 20050701
  Transmission Date: 20060218
  Serious: Yes (Hospitalization, Other)
  Sender: FDA-Public Use
  Company Number: HQWYE279916OCT03

PATIENT
  Age: 57 Year
  Sex: Female
  Weight: 79.9 kg

DRUGS (8)
  1. RALOXIFENE HCL [Suspect]
     Indication: OSTEOPOROSIS
     Dosage: 60 MG DAILY, ORAL
     Route: 048
     Dates: start: 20021204, end: 20031014
  2. RALOXIFENE HCL [Suspect]
  3. GLUCOSAMINE (GLUCOSAMINE) [Concomitant]
  4. LIPITOR [Concomitant]
  5. CLARITIN [Concomitant]
  6. MULTIVITAMINS, PLAIN (MULTIVITAMINS, PLAIN) [Concomitant]
  7. NAPROXEN [Concomitant]
  8. RALOXIFENE HCL [Suspect]
     Dosage: 60  MG DAYLY, ORAL
     Route: 048

REACTIONS (1)
  - BREAST CANCER FEMALE [None]
